FAERS Safety Report 10185081 (Version 1)
Quarter: 2014Q2

REPORT INFORMATION
  Report Type: Report from Study
  Country: US (occurrence: US)
  Receive Date: 20140521
  Receipt Date: 20140521
  Transmission Date: 20141212
  Serious: Yes (Hospitalization, Other)
  Sender: FDA-Public Use
  Company Number: US-ROCHE-1400057

PATIENT
  Age: 43 Year
  Sex: Female
  Weight: 102.15 kg

DRUGS (3)
  1. KADCYLA [Suspect]
     Indication: BREAST CANCER
     Route: 042
     Dates: start: 2013
  2. XELODA [Suspect]
     Indication: PRODUCT USED FOR UNKNOWN INDICATION
     Route: 048
     Dates: start: 201204, end: 201209
  3. XELODA [Suspect]
     Route: 048
     Dates: start: 201303, end: 201306

REACTIONS (3)
  - White blood cell count decreased [Recovered/Resolved]
  - Menorrhagia [Recovered/Resolved]
  - Epistaxis [Not Recovered/Not Resolved]
